FAERS Safety Report 5418976-2 (Version None)
Quarter: 2007Q3

REPORT INFORMATION
  Report Type: 
  Country: None (occurrence: None)
  Receive Date: 20070817
  Receipt Date: 20070814
  Transmission Date: 20080115
  Serious: Yes (Death, Hospitalization)
  Sender: FDA-Public Use
  Company Number: DK-GENENTECH-246109

PATIENT
  Age: 56 Year
  Sex: Female

DRUGS (11)
  1. RITUXIMAB [Suspect]
     Indication: DRUG USE FOR UNKNOWN INDICATION
  2. REMICADE [Suspect]
     Indication: RHEUMATOID ARTHRITIS
     Route: 042
  3. METHOTREXATE [Suspect]
     Indication: RHEUMATOID ARTHRITIS
     Dosage: 15 MG, 1/WEEK
  4. LEFLUNOMIDE [Concomitant]
     Indication: DRUG USE FOR UNKNOWN INDICATION
  5. METYSOLON [Concomitant]
     Indication: DRUG USE FOR UNKNOWN INDICATION
  6. VOLTAREN [Concomitant]
     Indication: DRUG USE FOR UNKNOWN INDICATION
  7. MOBIC [Concomitant]
     Indication: DRUG USE FOR UNKNOWN INDICATION
  8. RAMIPRIL [Concomitant]
     Indication: DRUG USE FOR UNKNOWN INDICATION
  9. CALCIUM D3 [Concomitant]
     Indication: DRUG USE FOR UNKNOWN INDICATION
  10. FORTEO [Concomitant]
     Indication: DRUG USE FOR UNKNOWN INDICATION
  11. FOLCUR [Concomitant]
     Indication: DRUG USE FOR UNKNOWN INDICATION

REACTIONS (4)
  - FOOT AMPUTATION [None]
  - LOCALISED INFECTION [None]
  - MULTI-ORGAN FAILURE [None]
  - STAPHYLOCOCCAL SEPSIS [None]
